FAERS Safety Report 16206593 (Version 11)
Quarter: 2019Q4

REPORT INFORMATION
  Report Type: Spontaneous
  Country: US (occurrence: US)
  Receive Date: 20190417
  Receipt Date: 20191120
  Transmission Date: 20200122
  Serious: Yes (Hospitalization, Other)
  Sender: FDA-Public Use
  Company Number: PHEH2019US015691

PATIENT
  Sex: Male
  Weight: 38.5 kg

DRUGS (8)
  1. SANDIMMUNE [Suspect]
     Active Substance: CYCLOSPORINE
     Dosage: 600 OT, UNK
     Route: 065
  2. GENGRAF [Suspect]
     Active Substance: CYCLOSPORINE
     Indication: PRODUCT USED FOR UNKNOWN INDICATION
     Dosage: UNK
     Route: 065
     Dates: start: 1997
  3. SANDIMMUNE [Suspect]
     Active Substance: CYCLOSPORINE
     Indication: IMMUNOSUPPRESSION
     Dosage: 800 MG, UNK
     Route: 065
     Dates: start: 19960126, end: 20001028
  4. PREDNISONE. [Suspect]
     Active Substance: PREDNISONE
     Dosage: UNK
     Route: 065
     Dates: start: 1997
  5. PREDNISONE. [Suspect]
     Active Substance: PREDNISONE
     Dosage: 5 MG, QW
     Route: 065
  6. LASIX [Concomitant]
     Active Substance: FUROSEMIDE
     Indication: PRODUCT USED FOR UNKNOWN INDICATION
     Dosage: UNK
     Route: 065
  7. PREDNISONE. [Suspect]
     Active Substance: PREDNISONE
     Indication: PRODUCT USED FOR UNKNOWN INDICATION
     Dosage: 5 MG, UNK
     Route: 065
  8. SANDIMMUNE [Suspect]
     Active Substance: CYCLOSPORINE
     Dosage: 200 MG, QD (AM)
     Route: 065

REACTIONS (46)
  - Eye colour change [Unknown]
  - Haemoglobin increased [Unknown]
  - Central nervous system lesion [Unknown]
  - Hypoaesthesia [Unknown]
  - Arthralgia [Unknown]
  - Muscle spasms [Unknown]
  - Pain in extremity [Unknown]
  - Sinusitis [Unknown]
  - Seizure [Unknown]
  - Personality change [Unknown]
  - Lung disorder [Unknown]
  - Hypoacusis [Unknown]
  - Asthenia [Unknown]
  - Nephrotic syndrome [Unknown]
  - Abnormal behaviour [Unknown]
  - Tremor [Unknown]
  - Migraine [Unknown]
  - Myalgia [Unknown]
  - Drug dependence [Unknown]
  - Impaired healing [Unknown]
  - Immune system disorder [Unknown]
  - Depression [Unknown]
  - Confusional state [Unknown]
  - Paraesthesia [Unknown]
  - Scar [Unknown]
  - Pain [Unknown]
  - Headache [Unknown]
  - Platelet count decreased [Unknown]
  - Pneumonia [Unknown]
  - Anger [Unknown]
  - Dyspnoea [Unknown]
  - Hypertension [Unknown]
  - Growth retardation [Unknown]
  - Haemorrhage [Unknown]
  - Hair growth abnormal [Unknown]
  - Delayed puberty [Unknown]
  - Sluggishness [Unknown]
  - Weight decreased [Unknown]
  - Dizziness postural [Unknown]
  - Tinnitus [Unknown]
  - Procedural complication [Unknown]
  - Asthma [Unknown]
  - Gingival hypertrophy [Unknown]
  - Constipation [Unknown]
  - Anxiety [Unknown]
  - Renal disorder [Unknown]
